FAERS Safety Report 16689640 (Version 8)
Quarter: 2019Q4

REPORT INFORMATION
  Report Type: Report from Study
  Country: US (occurrence: US)
  Receive Date: 20190809
  Receipt Date: 20191223
  Transmission Date: 20200122
  Serious: Yes (Hospitalization, Other)
  Sender: FDA-Public Use
  Company Number: US-ACTELION-A-NJ2017-153978

PATIENT
  Age: 58 Year
  Sex: Female
  Weight: 77.1 kg

DRUGS (15)
  1. VELETRI [Suspect]
     Active Substance: EPOPROSTENOL
     Dosage: 20.6 NG/KG, PER MIN
     Route: 042
  2. MUCINEX [Concomitant]
     Active Substance: GUAIFENESIN
  3. VELETRI [Suspect]
     Active Substance: EPOPROSTENOL
     Dosage: 22.6 NG/KG, PER MIN
     Route: 042
  4. ASPIRIN. [Concomitant]
     Active Substance: ASPIRIN
     Dosage: UNK
  5. FLONASE [Concomitant]
     Active Substance: FLUTICASONE PROPIONATE
  6. SILDENAFIL. [Concomitant]
     Active Substance: SILDENAFIL
     Dosage: UNK
  7. VELETRI [Suspect]
     Active Substance: EPOPROSTENOL
     Dosage: 16.6 NG/KG, PER MIN
     Route: 042
  8. PROTONIX [Concomitant]
     Active Substance: PANTOPRAZOLE SODIUM
     Dosage: UNK
  9. VELETRI [Suspect]
     Active Substance: EPOPROSTENOL
     Indication: PULMONARY ARTERIAL HYPERTENSION
     Dosage: 6 NG/KG/MIN
     Route: 042
     Dates: start: 201705
  10. VELETRI [Suspect]
     Active Substance: EPOPROSTENOL
     Dosage: 15 NG/KG, PER MIN
     Route: 042
  11. ALDACTONE [Concomitant]
     Active Substance: SPIRONOLACTONE
  12. ZYRTEC [Concomitant]
     Active Substance: CETIRIZINE HYDROCHLORIDE
  13. VELETRI [Suspect]
     Active Substance: EPOPROSTENOL
     Dosage: 10 NG/KG, PER MIN
     Route: 042
  14. SILDENAFIL. [Concomitant]
     Active Substance: SILDENAFIL
     Indication: PULMONARY ARTERIAL HYPERTENSION
     Dosage: 20 MG, TID
  15. LASIX [Concomitant]
     Active Substance: FUROSEMIDE
     Dosage: UNK

REACTIONS (45)
  - Gastrointestinal neoplasm [Unknown]
  - Device dislocation [Recovered/Resolved]
  - Blood iron decreased [Unknown]
  - Pain in jaw [Unknown]
  - Headache [Unknown]
  - Migraine [Unknown]
  - Toxicity to various agents [Unknown]
  - Post procedural complication [Unknown]
  - Stent placement [Unknown]
  - Tachycardia [Recovered/Resolved]
  - Pancreatitis acute [Recovered/Resolved]
  - Hot flush [Unknown]
  - Malaise [Unknown]
  - Adenomatous polyposis coli [Unknown]
  - Rash [Unknown]
  - Amnesia [Unknown]
  - Pancreatic neoplasm [Unknown]
  - Vomiting [Recovered/Resolved]
  - Catheter site haemorrhage [Recovered/Resolved]
  - Hypotension [Unknown]
  - Catheter site discharge [Unknown]
  - Fluid retention [Recovered/Resolved]
  - Nausea [Recovered/Resolved]
  - Influenza like illness [Unknown]
  - Diarrhoea [Unknown]
  - Musculoskeletal chest pain [Recovered/Resolved]
  - Urinary tract infection [Recovered/Resolved]
  - Catheter site erythema [Recovered/Resolved]
  - Catheter site hypersensitivity [Unknown]
  - Rash papular [Recovering/Resolving]
  - Feeling cold [Unknown]
  - Tumour excision [Unknown]
  - Endoscopic retrograde cholangiopancreatography [Recovered/Resolved]
  - Nasopharyngitis [Unknown]
  - Abdominal discomfort [Unknown]
  - Nasal dryness [Unknown]
  - Somnolence [Unknown]
  - Pyrexia [Recovered/Resolved]
  - Dizziness [Unknown]
  - Fatigue [Unknown]
  - Decreased appetite [Unknown]
  - Muscle spasms [Unknown]
  - Pain [Unknown]
  - Epistaxis [Unknown]
  - Condition aggravated [Unknown]

NARRATIVE: CASE EVENT DATE: 201705
